FAERS Safety Report 7457499-6 (Version None)
Quarter: 2011Q2

REPORT INFORMATION
  Report Type: 
  Country: None (occurrence: None)
  Receive Date: 20110504
  Receipt Date: 20110426
  Transmission Date: 20111010
  Serious: Yes (Other)
  Sender: FDA-Public Use
  Company Number: US-US-EMD SERONO, INC.-7056258

PATIENT
  Sex: Female

DRUGS (2)
  1. REBIF [Suspect]
     Indication: PRODUCT USED FOR UNKNOWN INDICATION
     Route: 058
     Dates: start: 20110321, end: 20110401
  2. REBIF [Suspect]
     Route: 058
     Dates: start: 20110424

REACTIONS (3)
  - CHOLECYSTECTOMY [None]
  - FEELING ABNORMAL [None]
  - HEADACHE [None]
